FAERS Safety Report 5320844-1 (Version None)
Quarter: 2007Q2

REPORT INFORMATION
  Report Type: 
  Country: None (occurrence: None)
  Receive Date: 20070502
  Receipt Date: 20070416
  Transmission Date: 20071010
  Serious: Yes (Hospitalization)
  Sender: FDA-Public Use
  Company Number: 2007US000774

PATIENT
  Age: 51 Year
  Sex: Male
  Weight: 86.2 kg

DRUGS (11)
  1. AMEVIVE [Suspect]
     Indication: PSORIASIS
     Dosage: 15 MG, WEEKLY, INTRAMUSCULAR
     Route: 030
     Dates: start: 20030930
  2. LITHIUM CARBONATE [Concomitant]
  3. ZOLOFT [Concomitant]
  4. NEXIUM [Concomitant]
  5. FLOMAX [Concomitant]
  6. XANAX [Concomitant]
  7. HUMIRA [Concomitant]
  8. NITROGLYCERIN [Concomitant]
  9. ASPIRIN [Concomitant]
  10. PLAVIX [Concomitant]
  11. ENBREL [Concomitant]

REACTIONS (6)
  - ABDOMINAL PAIN [None]
  - ASTHENIA [None]
  - CHEST PAIN [None]
  - DYSPNOEA [None]
  - NAUSEA [None]
  - VIRAL DIARRHOEA [None]
